FAERS Safety Report 26208003 (Version 1)
Quarter: 2025Q4

REPORT INFORMATION
  Report Type: Spontaneous
  Country: EU (occurrence: EU)
  Receive Date: 20251229
  Receipt Date: 20251229
  Transmission Date: 20260118
  Serious: Yes (Hospitalization, Other)
  Sender: GLAND PHARMA LTD
  Company Number: EU-GLANDPHARMA-ES-2025GLNLIT02155

PATIENT
  Age: 56 Year
  Sex: Female

DRUGS (1)
  1. EPINEPHRINE [Suspect]
     Active Substance: EPINEPHRINE
     Indication: Anaphylactic reaction

REACTIONS (4)
  - Facial paralysis [Not Recovered/Not Resolved]
  - Cerebral haemorrhage [Not Recovered/Not Resolved]
  - Hemiparesis [Not Recovered/Not Resolved]
  - Product use in unapproved indication [Unknown]
